FAERS Safety Report 5310043-1 (Version None)
Quarter: 2007Q2

REPORT INFORMATION
  Report Type: 
  Country: None (occurrence: None)
  Receive Date: 20070427
  Receipt Date: 20070424
  Transmission Date: 20071010
  Serious: Yes (Hospitalization)
  Sender: FDA-Public Use
  Company Number: JP-JPN-A200700857

PATIENT
  Age: 38 Year
  Sex: Female
  Weight: 42 kg

DRUGS (7)
  1. MODACIN [Suspect]
     Indication: PERITONITIS
     Dosage: 1G SEE DOSAGE TEXT
     Route: 033
     Dates: start: 20070223, end: 20070301
  2. HALOSPOR [Concomitant]
     Indication: PERITONITIS
     Dosage: 4G PER DAY
     Route: 033
     Dates: start: 20070213, end: 20070301
  3. PANSPORIN [Concomitant]
     Indication: PERITONITIS
     Dosage: 1G PER DAY
     Route: 042
     Dates: start: 20070213, end: 20070301
  4. TANATRIL [Concomitant]
     Indication: HYPERTENSION
     Route: 048
     Dates: start: 20061116, end: 20070301
  5. ADALAT [Concomitant]
     Indication: HYPERTENSION
     Route: 048
     Dates: start: 20061116, end: 20070301
  6. ALLOPURINOL [Concomitant]
     Indication: HYPERURICAEMIA
     Route: 048
     Dates: start: 20061116, end: 20070301
  7. CALTAN [Concomitant]
     Indication: HYPERLIPIDAEMIA
     Route: 048
     Dates: start: 20061130, end: 20070301

REACTIONS (2)
  - CONVULSION [None]
  - HALLUCINATION [None]
